FAERS Safety Report 12017030 (Version 1)
Quarter: 2016Q1

REPORT INFORMATION
  Report Type: Spontaneous
  Country: GB (occurrence: GB)
  Receive Date: 20160205
  Receipt Date: 20160205
  Transmission Date: 20160526
  Serious: Yes (Hospitalization)
  Sender: FDA-Public Use
  Company Number: GB-BIOMARINAP-GB-2016-108785

PATIENT
  Age: 7 Year
  Sex: Male

DRUGS (2)
  1. NAGLAZYME [Suspect]
     Active Substance: GALSULFASE
     Dosage: 25 MG, QOW
     Route: 042
     Dates: start: 20120417
  2. NAGLAZYME [Suspect]
     Active Substance: GALSULFASE
     Indication: MUCOPOLYSACCHARIDOSIS VI
     Dosage: 20 MG, QOW
     Route: 042
     Dates: start: 20120417

REACTIONS (5)
  - Vomiting [Unknown]
  - Weight gain poor [Unknown]
  - Abdominal pain [Unknown]
  - Hepatomegaly [Unknown]
  - Decreased appetite [Unknown]

NARRATIVE: CASE EVENT DATE: 20160122
